FAERS Safety Report 5371235-9 (Version None)
Quarter: 2007Q2

REPORT INFORMATION
  Report Type: 
  Country: None (occurrence: None)
  Receive Date: 20070615
  Receipt Date: 20070403
  Transmission Date: 20071010
  Serious: Yes (Other)
  Sender: FDA-Public Use
  Company Number: 200710677US

PATIENT
  Age: 82 Year
  Sex: Female

DRUGS (17)
  1. LANTUS [Suspect]
     Indication: DIABETES MELLITUS NON-INSULIN-DEPENDENT
     Dosage: 34 U QD
  2. APIDRA [Suspect]
     Indication: DIABETES MELLITUS NON-INSULIN-DEPENDENT
     Dosage: 20, 14, 16, U AC
  3. OPTICLIK [Suspect]
     Indication: DIABETES MELLITUS NON-INSULIN-DEPENDENT
  4. DIGOXIN [Concomitant]
  5. TOPROL-XL [Concomitant]
  6. ISOSORBIDE DINITRATE [Concomitant]
  7. VALSARTAN (DIOVANE) [Concomitant]
  8. FUROSEMIDE [Concomitant]
  9. SPIRONOLACTONE [Concomitant]
  10. ASPIRIN [Concomitant]
  11. WARFARIN SODIUM [Concomitant]
  12. ATORVASTATIN CALCIUM (LIPITOR) [Concomitant]
  13. LEVOBUNOLOL HYDROCHLORIDE (BETAGAN) [Concomitant]
  14. DIAZEPAM [Concomitant]
  15. PROPOXYPHENE HYDROCHLORIDE [Concomitant]
  16. HYDROCODONE BITARTRATE [Concomitant]
  17. ALPRAZOLAM [Concomitant]

REACTIONS (1)
  - HYPOGLYCAEMIC UNCONSCIOUSNESS [None]
